FAERS Safety Report 15223475 (Version 1)
Quarter: 2018Q3

REPORT INFORMATION
  Report Type: Spontaneous
  Country: US (occurrence: US)
  Receive Date: 20180731
  Receipt Date: 20180731
  Transmission Date: 20181010
  Serious: No
  Sender: FDA-Public Use
  Company Number: US-ENDO PHARMACEUTICALS INC-2018-012952

PATIENT
  Sex: Male
  Weight: 77.1 kg

DRUGS (2)
  1. TESTOPEL [Suspect]
     Active Substance: TESTOSTERONE
     Indication: BLOOD TESTOSTERONE DECREASED
     Dosage: 10 OR 12, 75 MG PELLETS, INTO THE BUTTOCKS, EVERY 4 MONTHS
     Route: 065
     Dates: start: 2015
  2. TESTOPEL [Suspect]
     Active Substance: TESTOSTERONE
     Dosage: 14, 75 MG PELLETS, INTO THE BUTTOCKS, EVERY 4 MONTHS
     Route: 065

REACTIONS (6)
  - Implant site pain [Recovered/Resolved]
  - Feeling abnormal [Unknown]
  - Prescribed overdose [Unknown]
  - Implant site swelling [Recovered/Resolved]
  - Abdominal distension [Recovered/Resolved]
  - Implant site bruising [Recovered/Resolved]

NARRATIVE: CASE EVENT DATE: 2015
